FAERS Safety Report 4286429-3 (Version None)
Quarter: 2004Q1

REPORT INFORMATION
  Report Type: 
  Country: None (occurrence: None)
  Receive Date: 20040205
  Receipt Date: 20040205
  Transmission Date: 20041129
  Serious: Yes (Hospitalization)
  Sender: FDA-Public Use
  Company Number: None

PATIENT
  Age: 85 Year
  Sex: Male
  Weight: 87.5442 kg

DRUGS (18)
  1. ETHYOL [Suspect]
     Indication: PROPHYLAXIS
     Dosage: 500 MG QD SQ
     Route: 058
     Dates: start: 20040129
  2. ETHYOL [Suspect]
     Indication: RADIATION INJURY
     Dosage: 500 MG QD SQ
     Route: 058
     Dates: start: 20040129
  3. ETHYOL [Suspect]
     Indication: PROPHYLAXIS
     Dosage: 500 MG QD SQ
     Route: 058
     Dates: start: 20040130
  4. ETHYOL [Suspect]
     Indication: RADIATION INJURY
     Dosage: 500 MG QD SQ
     Route: 058
     Dates: start: 20040130
  5. ETHYOL [Suspect]
     Indication: PROPHYLAXIS
     Dosage: 500 MG QD SQ
     Route: 058
     Dates: start: 20040202
  6. ETHYOL [Suspect]
     Indication: RADIATION INJURY
     Dosage: 500 MG QD SQ
     Route: 058
     Dates: start: 20040202
  7. BIAFEN RE [Concomitant]
  8. ASPIRIN [Concomitant]
  9. PHENERGAN [Concomitant]
  10. COUMADIN [Concomitant]
  11. COLACE [Concomitant]
  12. ISORDIL [Concomitant]
  13. GLUCOVANCE [Concomitant]
  14. DYAZIDE [Concomitant]
  15. TESSALON [Concomitant]
  16. LANOXIN [Concomitant]
  17. CARDIZEM [Concomitant]
  18. TOPROL-XL [Concomitant]

REACTIONS (3)
  - BRONCHITIS [None]
  - CARDIAC FAILURE CONGESTIVE [None]
  - MYOCARDIAL INFARCTION [None]
